FAERS Safety Report 22632501 (Version 5)
Quarter: 2025Q3

REPORT INFORMATION
  Report Type: Report from Study
  Country: JP (occurrence: JP)
  Receive Date: 20230623
  Receipt Date: 20250707
  Transmission Date: 20251020
  Serious: Yes (Death, Hospitalization, Other)
  Sender: NOVARTIS
  Company Number: JP-002147023-NVSJ2023JP006878

PATIENT
  Age: 64 Year
  Sex: Male
  Weight: 57 kg

DRUGS (8)
  1. LUTATHERA [Suspect]
     Active Substance: LUTETIUM OXODOTREOTIDE LU-177
     Indication: Neuroendocrine tumour of the rectum
     Route: 041
     Dates: start: 20220323, end: 20220323
  2. LUTATHERA [Suspect]
     Active Substance: LUTETIUM OXODOTREOTIDE LU-177
     Route: 041
     Dates: start: 20220519, end: 20220519
  3. ARGININE\LYSINE [Suspect]
     Active Substance: ARGININE\LYSINE
     Indication: Product used for unknown indication
     Route: 041
     Dates: start: 20220323
  4. ARGININE\LYSINE [Suspect]
     Active Substance: ARGININE\LYSINE
     Route: 041
     Dates: start: 20220519, end: 20220519
  5. ALOXI [Concomitant]
     Active Substance: PALONOSETRON HYDROCHLORIDE
     Indication: Antiemetic supportive care
     Route: 042
  6. ALOXI [Concomitant]
     Active Substance: PALONOSETRON HYDROCHLORIDE
     Indication: Prophylaxis of nausea and vomiting
  7. LANREOTIDE ACETATE [Concomitant]
     Active Substance: LANREOTIDE ACETATE
     Indication: Neuroendocrine tumour of the rectum
     Route: 058
     Dates: start: 20220520, end: 20220520
  8. OCTREOTIDE ACETATE [Concomitant]
     Active Substance: OCTREOTIDE ACETATE
     Indication: Neuroendocrine tumour of the rectum
     Route: 065
     Dates: start: 20220323, end: 20220518

REACTIONS (12)
  - Neuroendocrine tumour of the rectum [Fatal]
  - Malignant neoplasm progression [Fatal]
  - Ascites [Fatal]
  - Body temperature decreased [Fatal]
  - Blood urea increased [Fatal]
  - Altered state of consciousness [Fatal]
  - Hypoglycaemia [Fatal]
  - Metastases to liver [Fatal]
  - Hepatic failure [Fatal]
  - Myelosuppression [Fatal]
  - Lymphopenia [Not Recovered/Not Resolved]
  - Platelet count decreased [Not Recovered/Not Resolved]

NARRATIVE: CASE EVENT DATE: 20220516
